FAERS Safety Report 8251412-X (Version None)
Quarter: 2012Q2

REPORT INFORMATION
  Report Type: 
  Country: None (occurrence: None)
  Receive Date: 20120402
  Receipt Date: 20120327
  Transmission Date: 20120825
  Serious: Yes (Life-Threatening)
  Sender: FDA-Public Use
  Company Number: IT-PFIZER INC-2012078887

PATIENT
  Age: 3 Year
  Sex: Male

DRUGS (1)
  1. VANCOMYCIN HCL [Suspect]
     Indication: ENDOCARDITIS PROPHYLAXIS
     Dosage: 520 MG DAILY
     Route: 042
     Dates: start: 20120321, end: 20120321

REACTIONS (4)
  - PRURITUS [None]
  - FACE OEDEMA [None]
  - ERYTHEMA [None]
  - HYPOTENSION [None]
